FAERS Safety Report 12284007 (Version 2)
Quarter: 2016Q2

REPORT INFORMATION
  Report Type: Report from Study
  Country: US (occurrence: US)
  Receive Date: 20160419
  Receipt Date: 20160629
  Transmission Date: 20160815
  Serious: Yes (Other)
  Sender: FDA-Public Use
  Company Number: US-BAXALTA-2016BLT002415

PATIENT
  Sex: Female

DRUGS (2)
  1. GAMMAGARD LIQUID [Suspect]
     Active Substance: HUMAN IMMUNOGLOBULIN G
     Dosage: UNK
     Route: 042
     Dates: start: 20160401
  2. GAMMAGARD LIQUID [Suspect]
     Active Substance: HUMAN IMMUNOGLOBULIN G
     Indication: PRIMARY IMMUNODEFICIENCY SYNDROME
     Dosage: UNK
     Route: 042
     Dates: start: 201511

REACTIONS (9)
  - Thrombosis [Unknown]
  - Autonomic neuropathy [Unknown]
  - Herpes zoster [Unknown]
  - Nerve injury [Unknown]
  - Visual impairment [Unknown]
  - Chest pain [Unknown]
  - Vein disorder [Unknown]
  - Dyspnoea [Unknown]
  - Oxygen saturation decreased [Unknown]
